FAERS Safety Report 8149063 (Version 2)
Quarter: 2012Q4

REPORT INFORMATION
  Report Type: 
  Country: US (occurrence: US)
  Receive Date: 20110922
  Receipt Date: 20121119
  Transmission Date: 20130627
  Serious: No
  Sender: FDA-Public Use
  Company Number: US-ASTRAZENECA-2011SE25858

PATIENT
  Age: 45 Year
  Sex: Female
  Weight: 68 kg

DRUGS (1)
  1. SEROQUEL [Suspect]
     Indication: BIPOLAR I DISORDER
     Route: 048
     Dates: start: 2007

REACTIONS (3)
  - Mania [Unknown]
  - Exposure during pregnancy [Not Recovered/Not Resolved]
  - Drug dose omission [Unknown]
